FAERS Safety Report 25831696 (Version 2)
Quarter: 2025Q4

REPORT INFORMATION
  Report Type: Spontaneous
  Country: US (occurrence: US)
  Receive Date: 20250922
  Receipt Date: 20251107
  Transmission Date: 20260118
  Serious: No
  Sender: PFIZER
  Company Number: US-PFIZER INC-PV202500113329

PATIENT
  Age: 56 Year
  Sex: Male

DRUGS (7)
  1. XELJANZ [Suspect]
     Active Substance: TOFACITINIB CITRATE
     Indication: Rheumatoid arthritis
     Dosage: 5 MG, 2X/DAY
     Route: 048
     Dates: start: 20250916
  2. XELJANZ [Suspect]
     Active Substance: TOFACITINIB CITRATE
     Indication: Psoriatic arthropathy
     Dosage: 5 MG, DAILY
     Route: 048
     Dates: start: 2025, end: 2025
  3. XELJANZ [Suspect]
     Active Substance: TOFACITINIB CITRATE
     Dosage: 5 MG, 2X/DAY
     Route: 048
     Dates: start: 2025, end: 202510
  4. TADALAFIL [Concomitant]
     Active Substance: TADALAFIL
     Dosage: UNK
  5. WINREVAIR [Concomitant]
     Active Substance: SOTATERCEPT-CSRK
     Dosage: UNK [SDV]
  6. TYVASO DPI [Concomitant]
     Active Substance: TREPROSTINIL
     Dosage: UNK [MAINT KIT PWD]
  7. DUPIXENT [Concomitant]
     Active Substance: DUPILUMAB
     Dosage: UNK [PEN]

REACTIONS (3)
  - Rhinorrhoea [Unknown]
  - Fatigue [Recovering/Resolving]
  - Asthenia [Recovering/Resolving]

NARRATIVE: CASE EVENT DATE: 20250101
